FAERS Safety Report 17873018 (Version 2)
Quarter: 2020Q2

REPORT INFORMATION
  Report Type: Spontaneous
  Country: CA (occurrence: CA)
  Receive Date: 20200608
  Receipt Date: 20200629
  Transmission Date: 20200714
  Serious: Yes (Hospitalization)
  Sender: FDA-Public Use
  Company Number: CA-ACTELION-A-US2020-205990

PATIENT
  Sex: Female

DRUGS (16)
  1. VENTOLIN [Concomitant]
     Active Substance: ALBUTEROL SULFATE
  2. CARIPUL [Concomitant]
     Active Substance: EPOPROSTENOL
     Indication: PULMONARY ARTERIAL HYPERTENSION
     Dosage: 40 NG/KG, PER MIN
     Route: 042
  3. SANDOZ-MIRTAZAPINE [Concomitant]
     Dosage: 7.5 MG, QPM
  4. UPTRAVI [Suspect]
     Active Substance: SELEXIPAG
     Indication: PULMONARY ARTERIAL HYPERTENSION
     Dosage: 1600 MCG, BID
     Route: 048
     Dates: start: 202005, end: 2020
  5. TRACLEER [Concomitant]
     Active Substance: BOSENTAN
     Dosage: 62.5 MG, BID
  6. DIGOXIN. [Concomitant]
     Active Substance: DIGOXIN
     Dosage: 0.125 MG, QD
     Route: 048
  7. ATIVAN [Concomitant]
     Active Substance: LORAZEPAM
     Dosage: 0.5 MG, TID, PRN
  8. OXYGEN. [Concomitant]
     Active Substance: OXYGEN
     Dosage: 4 L AT REST
  9. CARIPUL [Concomitant]
     Active Substance: EPOPROSTENOL
     Dosage: UNK
     Route: 042
  10. SLOW-K [Concomitant]
     Active Substance: POTASSIUM CHLORIDE
     Dosage: 1200 MG, BID
  11. UPTRAVI [Suspect]
     Active Substance: SELEXIPAG
     Dosage: UNK
     Route: 048
     Dates: start: 20190501, end: 20190519
  12. NOVO-FERROGLUC [Concomitant]
     Dosage: 300 MG, QD
  13. RANITIDINE. [Concomitant]
     Active Substance: RANITIDINE
     Dosage: 150 UNK, BID
  14. FUROSEMIDE. [Concomitant]
     Active Substance: FUROSEMIDE
     Dosage: 80 MG, BID
  15. WARFARIN [Concomitant]
     Active Substance: WARFARIN
     Dosage: 1-2 MG, VARIABLE DOSE
  16. OXYGEN. [Concomitant]
     Active Substance: OXYGEN
     Dosage: 8 L WHILE SLEEPING

REACTIONS (4)
  - Condition aggravated [Recovering/Resolving]
  - Device related sepsis [Recovering/Resolving]
  - Pulmonary arterial hypertension [Recovering/Resolving]
  - Ascites [Recovering/Resolving]
